FAERS Safety Report 8113812-8 (Version None)
Quarter: 2012Q1

REPORT INFORMATION
  Report Type: 
  Country: None (occurrence: None)
  Receive Date: 20120203
  Receipt Date: 20120124
  Transmission Date: 20120608
  Serious: Yes (Hospitalization)
  Sender: FDA-Public Use
  Company Number: BR-ELI_LILLY_AND_COMPANY-BR201201007859

PATIENT
  Sex: Female
  Weight: 92 kg

DRUGS (8)
  1. PREDNISONE TAB [Concomitant]
     Dosage: UNK, QD
     Route: 065
  2. METFORMIN HYDROCHLORIDE [Concomitant]
     Dosage: UNK, UNKNOWN
     Route: 065
  3. MYFORTIC [Concomitant]
     Dosage: UNK, TID
     Route: 065
  4. FLUOXETINE HYDROCHLORIDE [Concomitant]
     Indication: DEPRESSION
     Dosage: UNK, UNKNOWN
     Route: 065
  5. BYETTA [Suspect]
     Dosage: 10 UG, QD
     Route: 065
  6. IRBESARTAN [Concomitant]
     Indication: BLOOD PRESSURE
     Dosage: UNK UNK, UNKNOWN
     Route: 065
  7. CLONAZEPAM [Concomitant]
     Dosage: UNK, UNKNOWN
     Route: 065
  8. BYETTA [Suspect]
     Indication: BLOOD GLUCOSE ABNORMAL
     Dosage: 5 UG, QD
     Route: 065

REACTIONS (3)
  - BLOOD GLUCOSE INCREASED [None]
  - DIABETES MELLITUS [None]
  - INAPPROPRIATE SCHEDULE OF DRUG ADMINISTRATION [None]
